FAERS Safety Report 23956072 (Version 1)
Quarter: 2024Q2

REPORT INFORMATION
  Report Type: Report from Study
  Country: US (occurrence: US)
  Receive Date: 20240610
  Receipt Date: 20240610
  Transmission Date: 20240716
  Serious: Yes (Other)
  Sender: FDA-Public Use
  Company Number: US-TEVA-VS-3206295

PATIENT
  Age: 71 Year
  Sex: Female

DRUGS (24)
  1. AUSTEDO XR [Suspect]
     Active Substance: DEUTETRABENAZINE
     Indication: Tardive dyskinesia
     Route: 048
  2. ATORVASTATIN [Concomitant]
     Active Substance: ATORVASTATIN
  3. SOLIFENACIN [Concomitant]
     Active Substance: SOLIFENACIN
  4. CALCIUM [Concomitant]
     Active Substance: CALCIUM
  5. CLOPIDOGREL [Concomitant]
     Active Substance: CLOPIDOGREL BISULFATE
  6. isosorbide m [Concomitant]
  7. OMEPRAZOLE [Concomitant]
     Active Substance: DONEPEZIL HYDROCHLORIDE\OMEPRAZOLE\OMEPRAZOLE MAGNESIUM
     Dosage: CPD
  8. BASAGLAR [Concomitant]
     Active Substance: INSULIN GLARGINE
     Dosage: KWI SOP100 UNIT
  9. LOSARTAN POTASSIUM [Concomitant]
     Active Substance: LOSARTAN POTASSIUM
  10. CARVEDILOL [Concomitant]
     Active Substance: CARVEDILOL
  11. HUMULIN NOS [Concomitant]
     Active Substance: INSULIN HUMAN
     Dosage: 70/3 SUS(70-30)
  12. MAGNESIUM [Concomitant]
     Active Substance: MAGNESIUM
  13. METHENAMINE [Concomitant]
     Active Substance: METHENAMINE
  14. paroxetine H [Concomitant]
  15. VITAMIN B12 [Concomitant]
     Active Substance: CYANOCOBALAMIN
  16. VITAMIN D3 [Concomitant]
     Active Substance: CHOLECALCIFEROL
     Dosage: 1000 UNIT
  17. XALATAN [Concomitant]
     Active Substance: LATANOPROST
  18. Clonidine HC [Concomitant]
  19. FUROSEMIDE [Concomitant]
     Active Substance: FUROSEMIDE
  20. GABAPENTIN [Concomitant]
     Active Substance: GABAPENTIN
  21. HYDROCHLOROTHIAZIDE [Concomitant]
     Active Substance: HYDROCHLOROTHIAZIDE
  22. INSULIN GLAR [Concomitant]
     Dosage: SOP 100 UNIT
  23. potassium ch [Concomitant]
     Dosage: TBC
  24. XARELTO [Concomitant]
     Active Substance: RIVAROXABAN

REACTIONS (6)
  - Cardiac failure congestive [Not Recovered/Not Resolved]
  - Product dose omission issue [Unknown]
  - Loss of personal independence in daily activities [Not Recovered/Not Resolved]
  - Sleep disorder [Not Recovered/Not Resolved]
  - Oxygen saturation decreased [Not Recovered/Not Resolved]
  - Dyspnoea [Not Recovered/Not Resolved]

NARRATIVE: CASE EVENT DATE: 20240501
